FAERS Safety Report 7915789-4 (Version None)
Quarter: 2011Q4

REPORT INFORMATION
  Report Type: 
  Country: None (occurrence: None)
  Receive Date: 20111115
  Receipt Date: 20111103
  Transmission Date: 20120403
  Serious: Yes (Other)
  Sender: FDA-Public Use
  Company Number: FR-CELGENEUS-056-21880-11110585

PATIENT
  Sex: Female

DRUGS (1)
  1. REVLIMID [Suspect]
     Indication: MULTIPLE MYELOMA
     Route: 048
     Dates: start: 20100601, end: 20110201

REACTIONS (3)
  - NEUROPATHY PERIPHERAL [None]
  - DEEP VEIN THROMBOSIS [None]
  - CARDIAC DISORDER [None]
